FAERS Safety Report 15598346 (Version 2)
Quarter: 2019Q3

REPORT INFORMATION
  Report Type: Spontaneous
  Country: US (occurrence: US)
  Receive Date: 20181108
  Receipt Date: 20190828
  Transmission Date: 20191004
  Serious: No
  Sender: FDA-Public Use
  Company Number: US-MYLANLABS-2018M1081412

PATIENT
  Sex: Female
  Weight: 77.11 kg

DRUGS (3)
  1. ZANAFLEX [Concomitant]
     Active Substance: TIZANIDINE HYDROCHLORIDE
     Indication: PRODUCT USED FOR UNKNOWN INDICATION
     Dosage: 4 MG, Q8H
     Route: 048
  2. DIPHENHYDRAMINE HYDROCHLORIDE INJECTION USP [Suspect]
     Active Substance: DIPHENHYDRAMINE HYDROCHLORIDE
     Indication: MIGRAINE
     Dosage: UNK
  3. KLONOPIN [Concomitant]
     Active Substance: CLONAZEPAM
     Indication: PRODUCT USED FOR UNKNOWN INDICATION
     Dosage: 1 MG, BID

REACTIONS (11)
  - Injection site erythema [Unknown]
  - Product administration error [Unknown]
  - Injection site warmth [Unknown]
  - Burning sensation [None]
  - Therapeutic product effect decreased [Unknown]
  - Off label use [Unknown]
  - Hypotonia [Unknown]
  - Hypoaesthesia [Unknown]
  - Injection site indentation [Unknown]
  - Product dose omission [Unknown]
  - Injection site mass [Unknown]

NARRATIVE: CASE EVENT DATE: 2010
